FAERS Safety Report 16316917 (Version 19)
Quarter: 2021Q3

REPORT INFORMATION
  Report Type: Spontaneous
  Country: CA (occurrence: CA)
  Receive Date: 20190515
  Receipt Date: 20210702
  Transmission Date: 20211014
  Serious: Yes (Hospitalization, Other)
  Sender: FDA-Public Use
  Company Number: CA-CELLTRION INC.-2019CA021079

PATIENT

DRUGS (26)
  1. PRO?AZITHROMYCINE [Concomitant]
     Indication: INFECTION
     Dosage: 500 MG ON DAY 1, THEN 250 MG DAILY FOR FOUR DAYS
     Route: 048
     Dates: start: 20200404, end: 20200408
  2. VITAMIN D [Concomitant]
     Active Substance: VITAMIN D NOS
     Dosage: UNK, 1X/DAY (OD)
     Route: 048
  3. INFLECTRA [Suspect]
     Active Substance: INFLIXIMAB-DYYB
     Indication: ANKYLOSING SPONDYLITIS
     Dosage: 5 MG/KG, AT 0, 2, 6, THEN EVERY 6 WEEKS
     Route: 042
     Dates: start: 20190411, end: 20201003
  4. INFLECTRA [Suspect]
     Active Substance: INFLIXIMAB-DYYB
     Dosage: 5 MG/KG AT 0, 2, 6, THEN EVERY 6 WEEKS
     Route: 042
     Dates: start: 20200208
  5. INFLECTRA [Suspect]
     Active Substance: INFLIXIMAB-DYYB
     Dosage: 5 MG/KG, 0, 2, 6 WEEKS, THEN EVERY 6 WEEKS
     Route: 042
     Dates: start: 20201003
  6. INFLECTRA [Suspect]
     Active Substance: INFLIXIMAB-DYYB
     Dosage: 8 MG/KG, EVERY 6 WEEKS
     Route: 042
     Dates: start: 20201231
  7. INFLECTRA [Suspect]
     Active Substance: INFLIXIMAB-DYYB
     Dosage: 8 MG/KG, EVERY 6 WEEKS
     Route: 042
     Dates: start: 20210621
  8. VENLAFAXINE XR [Concomitant]
     Active Substance: VENLAFAXINE HYDROCHLORIDE
     Dosage: UNK (75 MG + 37.5 MG)
     Route: 065
  9. VITAMIN B12 [Concomitant]
     Active Substance: CYANOCOBALAMIN
     Dosage: 1 DF
     Route: 065
  10. INFLECTRA [Suspect]
     Active Substance: INFLIXIMAB-DYYB
     Dosage: 5 MG/KG AT 0, 2, 6, THEN EVERY 6 WEEKS
     Route: 042
     Dates: start: 20190425
  11. HYDROCORTISONE. [Concomitant]
     Active Substance: HYDROCORTISONE
     Indication: PROPHYLAXIS
     Dosage: 100 MG
     Route: 042
  12. NAPROXEN. [Concomitant]
     Active Substance: NAPROXEN
     Dosage: 500 MG, 2X/DAY
     Route: 048
     Dates: start: 201711
  13. PMS BETAHISTINE [Concomitant]
     Dosage: UNK
     Route: 048
  14. PRO?AZITHROMYCINE [Concomitant]
     Indication: BRONCHITIS
  15. CONSTELLA [Concomitant]
     Active Substance: LINACLOTIDE
     Dosage: UNK, 1X/DAY (OD)
     Route: 048
     Dates: start: 20190624
  16. PNEUMOVAX 23 [Concomitant]
     Active Substance: PNEUMOCOCCAL VACCINE, POLYVALENT 23
     Dosage: UNK
     Route: 065
     Dates: start: 20190625, end: 20190625
  17. VENLAFAXINE XR [Concomitant]
     Active Substance: VENLAFAXINE HYDROCHLORIDE
     Dosage: UNK (75 MG + 37.5 MG)
     Route: 065
  18. INFLECTRA [Suspect]
     Active Substance: INFLIXIMAB-DYYB
     Dosage: 5 MG/KG AT 0, 2, 6, THEN EVERY 6 WEEKS
     Route: 042
     Dates: start: 20190706
  19. INFLECTRA [Suspect]
     Active Substance: INFLIXIMAB-DYYB
     Dosage: 8 MG/KG, EVERY 6 WEEKS
     Route: 042
     Dates: start: 20210206
  20. ZINC. [Concomitant]
     Active Substance: ZINC
     Dosage: UNK
     Route: 065
  21. INFLECTRA [Suspect]
     Active Substance: INFLIXIMAB-DYYB
     Dosage: 8 MG/KG, EVERY 6 WEEKS
     Route: 042
     Dates: start: 20210320
  22. INFLECTRA [Suspect]
     Active Substance: INFLIXIMAB-DYYB
     Dosage: 8 MG/KG, EVERY 6 WEEKS
     Route: 042
     Dates: start: 20210501
  23. DIPHENHYDRAMINE. [Concomitant]
     Active Substance: DIPHENHYDRAMINE
     Indication: PROPHYLAXIS
     Dosage: 50 MG
     Route: 048
  24. INFLECTRA [Suspect]
     Active Substance: INFLIXIMAB-DYYB
     Dosage: 5 MG/KG, 0, 2, 6 WEEKS, THEN EVERY 6 WEEKS
     Route: 042
     Dates: start: 20200418
  25. INFLECTRA [Suspect]
     Active Substance: INFLIXIMAB-DYYB
     Dosage: 8 MG/KG, EVERY 6 WEEKS
     Route: 042
     Dates: start: 20201114
  26. GARLIC. [Concomitant]
     Active Substance: GARLIC
     Dosage: UNK
     Route: 065

REACTIONS (18)
  - Headache [Unknown]
  - Nasal congestion [Unknown]
  - Diarrhoea [Unknown]
  - Weight decreased [Unknown]
  - Fatigue [Unknown]
  - Back pain [Not Recovered/Not Resolved]
  - Condition aggravated [Unknown]
  - Intentional product use issue [Unknown]
  - Neurogenic shock [Unknown]
  - Haematochezia [Unknown]
  - Oropharyngeal pain [Not Recovered/Not Resolved]
  - Hypoaesthesia [Not Recovered/Not Resolved]
  - Inflammation [Unknown]
  - Off label use [Unknown]
  - Constipation [Unknown]
  - Abdominal distension [Unknown]
  - Abdominal pain [Unknown]
  - Bronchitis [Unknown]

NARRATIVE: CASE EVENT DATE: 2019
